FAERS Safety Report 7087820-2 (Version None)
Quarter: 2010Q4

REPORT INFORMATION
  Report Type: 
  Country: None (occurrence: None)
  Receive Date: 20101108
  Receipt Date: 20101025
  Transmission Date: 20110411
  Serious: No
  Sender: FDA-Public Use
  Company Number: IT-JNJFOC-20101007351

PATIENT
  Sex: Male

DRUGS (3)
  1. DURAGESIC-100 [Suspect]
     Indication: SCIATICA
     Route: 062
  2. BENTELAN [Suspect]
     Indication: SCIATICA
     Route: 065
  3. EFFERALGAN [Suspect]
     Indication: SCIATICA
     Route: 048

REACTIONS (3)
  - GINGIVAL PAIN [None]
  - INAPPROPRIATE SCHEDULE OF DRUG ADMINISTRATION [None]
  - SENSITIVITY OF TEETH [None]
